FAERS Safety Report 5142947-7 (Version None)
Quarter: 2006Q4

REPORT INFORMATION
  Report Type: 
  Country: None (occurrence: None)
  Receive Date: 20061030
  Receipt Date: 20060615
  Transmission Date: 20070319
  Serious: Yes (Hospitalization)
  Sender: FDA-Public Use
  Company Number: 863#3#2006-00014

PATIENT
  Age: 90 Year
  Sex: Female

DRUGS (13)
  1. IDROLAX (MACROGOL) [Suspect]
     Dosage: 10 G (10 G 1 IN 1 DAY(S))
     Route: 048
     Dates: end: 20060615
  2. AMLORIDE (AMILORIDE HYDROCHLORIDE, HYDROCHLOROTHIAZIDE) [Concomitant]
  3. AMLODIPINE BESYLATE [Suspect]
     Dosage: 5 MG (5 MG 1 IN 1 DAY(S))
     Route: 048
  4. PAROXETINE (PAROXETINE HYDROCHLORIDE) [Suspect]
     Dosage: 10 MG (10 MG 1 NI 1 DAY(S))
     Route: 048
     Dates: start: 20060524, end: 20060614
  5. PANTOPRAZOLE SODIUM [Suspect]
     Dosage: 40 G (40 G 1 IN 1 DAY(S))
     Route: 048
     Dates: end: 20060615
  6. BUFLOMEDIL (BUFLOMEDIL) [Suspect]
     Dosage: 600 MG (300 MG 2 IN 1 DAY(S))
     Route: 048
     Dates: end: 20060615
  7. LATANOPROST [Concomitant]
  8. BROMAZEPAM (BROMAZEPAM) [Concomitant]
  9. TRIMETAZIDINE HYDROCHLORIDE (TRIMETAZIDINE HYDROCHLORIDE) [Concomitant]
  10. FORTIMEL [Concomitant]
  11. CLOPIDOGREL BISULPHATE (CLOPIDOGREL SULFATE) [Concomitant]
  12. AMOXICILLIN (AMOXICILLIN TRIHYDRATE) [Concomitant]
  13. METRONIDAZOLE [Concomitant]

REACTIONS (5)
  - BLOOD CREATININE INCREASED [None]
  - DISORIENTATION [None]
  - HYPONATRAEMIA [None]
  - SIGMOIDITIS [None]
  - SUBILEUS [None]
